FAERS Safety Report 4314869-2 (Version None)
Quarter: 2004Q1

REPORT INFORMATION
  Report Type: 
  Country: None (occurrence: None)
  Receive Date: 20040308
  Receipt Date: 20040227
  Transmission Date: 20041129
  Serious: Yes (Life-Threatening, Disabling)
  Sender: FDA-Public Use
  Company Number: TCI2004A00384

PATIENT
  Age: 65 Year
  Sex: Male

DRUGS (8)
  1. ACTOS [Suspect]
     Indication: DIABETES MELLITUS
     Dosage: 30 MG (30 MG, 1 IN 1 D) PER ORAL
     Route: 048
     Dates: start: 20020921, end: 20031229
  2. LOSARTAN POTASSIUM [Concomitant]
  3. TEMOCAPRIL HYDROCHLORIDE [Concomitant]
  4. LIVALO (PITAVASTATIN CALCIUM) [Concomitant]
  5. BISOPROLOL FUMARATE [Concomitant]
  6. NIFEDIPINE [Concomitant]
  7. ATORVASTATIN [Concomitant]
  8. BEZAFIBRATE [Concomitant]

REACTIONS (2)
  - ACUTE MYOCARDIAL INFARCTION [None]
  - CARDIAC FAILURE CONGESTIVE [None]
